FAERS Safety Report 9800874 (Version 1)
Quarter: 2014Q1

REPORT INFORMATION
  Report Type: Spontaneous
  Country: US (occurrence: US)
  Receive Date: 20140107
  Receipt Date: 20140107
  Transmission Date: 20141002
  Serious: Yes (Disabling)
  Sender: FDA-Public Use
  Company Number: US-GE HEALTHCARE MEDICAL DIAGNOSTICS-OSCN-PR-1312S-0138

PATIENT
  Age: 56 Year
  Sex: Male

DRUGS (14)
  1. OMNISCAN [Suspect]
     Indication: ENDOCARDITIS
     Route: 042
     Dates: start: 20050902, end: 20050902
  2. OMNISCAN [Suspect]
     Indication: AORTIC STENOSIS
  3. OMNISCAN [Suspect]
     Indication: MITRAL VALVE STENOSIS
  4. OMNISCAN [Suspect]
     Indication: MASS
  5. EPOGEN [Concomitant]
  6. TOPROL XL [Concomitant]
  7. HYDRALAZINE [Concomitant]
  8. CELEBREX [Concomitant]
  9. HYDROCHLOROTHIAZIDE [Concomitant]
  10. NORVASC [Concomitant]
  11. PHOSLO [Concomitant]
  12. COUMADIN [Concomitant]
  13. POTASSIUM CHLORIDE [Concomitant]
  14. BUMEX [Concomitant]

REACTIONS (1)
  - Nephrogenic systemic fibrosis [Not Recovered/Not Resolved]
